FAERS Safety Report 6306184-2 (Version None)
Quarter: 2009Q3

REPORT INFORMATION
  Report Type: 
  Country: None (occurrence: None)
  Receive Date: 20090810
  Receipt Date: 20090729
  Transmission Date: 20100115
  Serious: Yes (Death)
  Sender: FDA-Public Use
  Company Number: 2009AL005012

PATIENT
  Age: 70 Year
  Sex: Male

DRUGS (1)
  1. DIGOXIN [Suspect]
     Dosage: PO
     Route: 048

REACTIONS (6)
  - ARRHYTHMIA [None]
  - CELLULITIS [None]
  - CORONARY ARTERY DISEASE [None]
  - OEDEMA [None]
  - SKIN EXFOLIATION [None]
  - SKIN FISSURES [None]
